FAERS Safety Report 21211249 (Version 1)
Quarter: 2022Q3

REPORT INFORMATION
  Report Type: Spontaneous
  Country: US (occurrence: None)
  Receive Date: 20220812
  Receipt Date: 20220812
  Transmission Date: 20221026
  Serious: Yes (Disabling, Other)
  Sender: FDA-Public Use
  Company Number: None

PATIENT
  Age: 67 Year
  Sex: Female
  Weight: 55.8 kg

DRUGS (6)
  1. PAXLOVID [Suspect]
     Active Substance: NIRMATRELVIR\RITONAVIR
  2. PROZAC [Concomitant]
     Active Substance: FLUOXETINE HYDROCHLORIDE
  3. NORCO [Concomitant]
     Active Substance: ACETAMINOPHEN\HYDROCODONE BITARTRATE
  4. VITAMIN C [Concomitant]
     Active Substance: ASCORBIC ACID
  5. MAGNESIUM [Concomitant]
     Active Substance: MAGNESIUM
  6. COLLAGEN [Concomitant]
     Active Substance: COLLAGEN

REACTIONS (13)
  - Malaise [None]
  - Accidental overdose [None]
  - Contraindication to medical treatment [None]
  - Feeling abnormal [None]
  - Taste disorder [None]
  - Hypophagia [None]
  - Asthenia [None]
  - Walking aid user [None]
  - Dysstasia [None]
  - Abdominal pain upper [None]
  - Nausea [None]
  - Chills [None]
  - Feeling abnormal [None]

NARRATIVE: CASE EVENT DATE: 20220803
